FAERS Safety Report 10445201 (Version 12)
Quarter: 2019Q3

REPORT INFORMATION
  Report Type: Spontaneous
  Country: GR (occurrence: GR)
  Receive Date: 20140910
  Receipt Date: 20190806
  Transmission Date: 20191004
  Serious: Yes (Other)
  Sender: FDA-Public Use
  Company Number: GR-AMGEN-GRCSP2014068727

PATIENT
  Age: 56 Year
  Sex: Female
  Weight: 50 kg

DRUGS (17)
  1. ENBREL [Suspect]
     Active Substance: ETANERCEPT
     Indication: RHEUMATOID ARTHRITIS
     Dosage: 50 MG, WEEKLY
     Route: 058
     Dates: start: 20140610
  2. CALVIDIN [Concomitant]
     Dosage: UNK, 1X 2
     Route: 048
  3. PROLIA [Suspect]
     Active Substance: DENOSUMAB
     Indication: OSTEOPOROSIS POSTMENOPAUSAL
     Dosage: 60 MG, Q6MO (CYCLICAL)
     Route: 058
     Dates: start: 20130731
  4. FILICINE [Concomitant]
     Dosage: UNK UNK, QWK
     Route: 065
  5. MTX [Concomitant]
     Active Substance: METHOTREXATE SODIUM
     Indication: RHEUMATOID ARTHRITIS
     Dosage: 10 MG, WEEKLY
     Route: 065
     Dates: start: 20130508
  6. MTX [Concomitant]
     Active Substance: METHOTREXATE SODIUM
     Indication: RHEUMATOID ARTHRITIS
  7. FILICINE [Concomitant]
     Dosage: UNK UNK, QWK
  8. FILICINE [Concomitant]
     Dosage: UNK
     Route: 065
  9. FILICINE [Concomitant]
     Dosage: UNK
  10. FILICINE [Concomitant]
     Dosage: UNK UNK, QWK
  11. ENBREL [Suspect]
     Active Substance: ETANERCEPT
     Indication: RHEUMATOID ARTHRITIS
  12. CALVIDIN [Concomitant]
     Indication: OSTEOPOROSIS
     Dosage: UNK, 1X 2
     Route: 048
     Dates: start: 20130730
  13. FILICINE [Concomitant]
     Indication: RHEUMATOID ARTHRITIS
     Dosage: UNK UNK, QWK
     Route: 048
     Dates: start: 20130508
  14. FILICINE [Concomitant]
     Dosage: UNK UNK, QWK
  15. FILICINE [Concomitant]
     Dosage: UNK
     Route: 065
  16. FILICINE [Concomitant]
     Dosage: UNK UNK, QWK
     Route: 065
  17. FILICINE [Concomitant]
     Dosage: UNK

REACTIONS (6)
  - Rheumatoid arthritis [Recovered/Resolved]
  - Dizziness [Recovered/Resolved]
  - Tendonitis [Not Recovered/Not Resolved]
  - Fatigue [Recovered/Resolved]
  - Asthenia [Recovered/Resolved]
  - Liver disorder [Unknown]

NARRATIVE: CASE EVENT DATE: 2014
